FAERS Safety Report 4950359-1 (Version None)
Quarter: 2006Q1

REPORT INFORMATION
  Report Type: 
  Country: None (occurrence: None)
  Receive Date: 20060315
  Receipt Date: 20060306
  Transmission Date: 20060701
  Serious: Yes (Hospitalization)
  Sender: FDA-Public Use
  Company Number: 173004

PATIENT
  Age: 45 Year
  Sex: Female
  Weight: 106.1417 kg

DRUGS (6)
  1. AVONEX [Suspect]
     Indication: MULTIPLE SCLEROSIS
     Dosage: 30 UG;QW;IM
     Route: 030
     Dates: start: 19960101, end: 20030101
  2. AVONEX [Suspect]
     Indication: MULTIPLE SCLEROSIS
     Dosage: 30 UG;QW;IM
     Route: 030
     Dates: start: 20030101
  3. METHYLPREDNISOLONE [Concomitant]
  4. RELAFEN [Concomitant]
  5. ULTRAM [Concomitant]
  6. TORADOL [Concomitant]

REACTIONS (11)
  - ASTHENIA [None]
  - FATIGUE [None]
  - FLUID RETENTION [None]
  - FLUSHING [None]
  - HIP ARTHROPLASTY [None]
  - HYPERTENSION [None]
  - INFLUENZA LIKE ILLNESS [None]
  - MULTIPLE SCLEROSIS RELAPSE [None]
  - OSTEONECROSIS [None]
  - PROCEDURAL PAIN [None]
  - SEASONAL ALLERGY [None]
